FAERS Safety Report 22608818 (Version 1)
Quarter: 2023Q2

REPORT INFORMATION
  Report Type: Spontaneous
  Country: CA (occurrence: CA)
  Receive Date: 20230616
  Receipt Date: 20230616
  Transmission Date: 20230722
  Serious: Yes (Death)
  Sender: FDA-Public Use
  Company Number: CA-TEVA-2023-CA-2897428

PATIENT
  Age: 51 Year
  Sex: Male

DRUGS (1)
  1. PAROXETINE [Suspect]
     Active Substance: PAROXETINE
     Indication: Product used for unknown indication
     Route: 065

REACTIONS (6)
  - Acute coronary syndrome [Fatal]
  - Agitation [Fatal]
  - Anxiety [Fatal]
  - Cardio-respiratory arrest [Fatal]
  - Dyspnoea [Fatal]
  - Toxicity to various agents [Fatal]
